FAERS Safety Report 5706631-0 (Version None)
Quarter: 2008Q2

REPORT INFORMATION
  Report Type: 
  Country: None (occurrence: None)
  Receive Date: 20080414
  Receipt Date: 20061017
  Transmission Date: 20081010
  Serious: Yes (Hospitalization, Other)
  Sender: FDA-Public Use
  Company Number: 2006VX001949

PATIENT
  Sex: Female

DRUGS (1)
  1. LEVATE (AMITRIPTYLINE HYDROCHLORIDE) [Suspect]
     Dosage: 1500 MG; PO
     Route: 048

REACTIONS (5)
  - GRAND MAL CONVULSION [None]
  - HALLUCINATION [None]
  - OVERDOSE [None]
  - PSYCHOTIC DISORDER [None]
  - TACHYCARDIA [None]
